FAERS Safety Report 5068913-8 (Version None)
Quarter: 2006Q3

REPORT INFORMATION
  Report Type: 
  Country: None (occurrence: None)
  Receive Date: 20060731
  Receipt Date: 20060717
  Transmission Date: 20061208
  Serious: Yes (Death)
  Sender: FDA-Public Use
  Company Number: 2006054419

PATIENT
  Age: 74 Year
  Sex: Female
  Weight: 77.1115 kg

DRUGS (2)
  1. CELEBREX [Suspect]
     Indication: KNEE ARTHROPLASTY
     Dosage: 200 MG (200 MG, 1 IN 1 D),
     Dates: start: 20000307, end: 20010330
  2. BEXTRA [Suspect]
     Indication: KNEE ARTHROPLASTY
     Dosage: 20 MG (10 MG, 2 IN 1 D)
     Dates: start: 20020405, end: 20020718

REACTIONS (1)
  - MYOCARDIAL INFARCTION [None]
